FAERS Safety Report 17930703 (Version 2)
Quarter: 2020Q3

REPORT INFORMATION
  Report Type: Report from Study
  Country: IT (occurrence: IT)
  Receive Date: 20200623
  Receipt Date: 20200720
  Transmission Date: 20201103
  Serious: Yes (Other)
  Sender: FDA-Public Use
  Company Number: IT-BIOMARINAP-IT-2020-127966

PATIENT
  Age: 22 Year
  Sex: Female

DRUGS (3)
  1. NATALBEN PLUS [Concomitant]
     Indication: PREGNANCY
     Dosage: UNK, QD
     Route: 048
     Dates: start: 20190830
  2. KUVAN [Suspect]
     Active Substance: SAPROPTERIN DIHYDROCHLORIDE
     Indication: PRODUCT USED FOR UNKNOWN INDICATION
     Dosage: 480 MILLIGRAM, QD
     Route: 048
     Dates: start: 20140626, end: 20190909
  3. KUVAN [Suspect]
     Active Substance: SAPROPTERIN DIHYDROCHLORIDE
     Dosage: 900 MILLIGRAM, QD
     Route: 048
     Dates: start: 20190910

REACTIONS (2)
  - Caesarean section [Recovered/Resolved]
  - Maternal exposure during pregnancy [Recovered/Resolved]

NARRATIVE: CASE EVENT DATE: 20200412
